FAERS Safety Report 21679976 (Version 1)
Quarter: 2022Q4

REPORT INFORMATION
  Report Type: Spontaneous
  Country: IN (occurrence: IN)
  Receive Date: 20221205
  Receipt Date: 20221205
  Transmission Date: 20230113
  Serious: No
  Sender: FDA-Public Use
  Company Number: IN-LUPIN LIMITED-2022-13997

PATIENT
  Age: 34 Year
  Sex: Female

DRUGS (2)
  1. METFORMIN [Suspect]
     Active Substance: METFORMIN HYDROCHLORIDE
     Indication: Gestational diabetes
     Dosage: 500 MG, TABLET
     Route: 065
  2. LEVOTHYROXINE [Suspect]
     Active Substance: LEVOTHYROXINE
     Indication: Hypothyroidism
     Dosage: 50 MICROGRAM
     Route: 065

REACTIONS (2)
  - Exposure during pregnancy [Unknown]
  - Normal newborn [Unknown]
